FAERS Safety Report 7639399-1 (Version None)
Quarter: 2011Q3

REPORT INFORMATION
  Report Type: 
  Country: None (occurrence: None)
  Receive Date: 20110721
  Receipt Date: 20110705
  Transmission Date: 20111222
  Serious: Yes (Death, Hospitalization, Other)
  Sender: FDA-Public Use
  Company Number: DAV-AE-MTX-11-041

PATIENT
  Age: 73 Year
  Sex: Female
  Weight: 57.6068 kg

DRUGS (8)
  1. MUCOSTA [Concomitant]
  2. METHOTREXATE [Suspect]
     Indication: RHEUMATOID ARTHRITIS
     Dosage: 6 MG, WK, ORAL
     Route: 048
     Dates: end: 20101105
  3. PREDNISOLONE [Suspect]
     Dosage: 5MG, QD; INTRAVENOUS
     Route: 042
     Dates: start: 20101111, end: 20110107
  4. VOLTAREN [Concomitant]
  5. ALENDRONATE SODIUM [Concomitant]
  6. RABEPRAZOLE SODIUM [Concomitant]
  7. ETANERCEPT [Concomitant]
  8. ISONIAZID [Concomitant]

REACTIONS (7)
  - ALANINE AMINOTRANSFERASE INCREASED [None]
  - BLOOD TRIGLYCERIDES INCREASED [None]
  - HAEMOGLOBIN DECREASED [None]
  - HAEMATOCRIT DECREASED [None]
  - PROTEIN TOTAL DECREASED [None]
  - SEPTIC SHOCK [None]
  - CYTOMEGALOVIRUS INFECTION [None]
